FAERS Safety Report 7377451-9 (Version None)
Quarter: 2011Q1

REPORT INFORMATION
  Report Type: 
  Country: None (occurrence: None)
  Receive Date: 20110316
  Receipt Date: 20110301
  Transmission Date: 20110831
  Serious: Yes (Hospitalization)
  Sender: FDA-Public Use
  Company Number: 1000018273

PATIENT
  Age: 72 Year
  Sex: Female

DRUGS (6)
  1. BURINEX (BUMETANIDE) [Suspect]
     Indication: CARDIAC DISORDER
     Dosage: 1 MG (1 MG, 1 IN 1 D),
  2. LAMICTAL [Suspect]
  3. SPIRIX (SPIRONOLACTONE) [Suspect]
     Indication: CARDIAC DISORDER
     Dosage: 25 MG (25 MG, 1 IN 1 D);
  4. ABILIFY [Suspect]
     Indication: BIPOLAR DISORDER
     Dosage: 10 MG (10 MG, 1 IN 1 D);
  5. WARFARIN SODIUM [Concomitant]
  6. ESCITALOPRAM OXALATE [Suspect]
     Indication: BIPOLAR DISORDER
     Dosage: 20 MG (20 MG, 1 IN 1 D),

REACTIONS (3)
  - HYPONATRAEMIA [None]
  - BLOOD OSMOLARITY DECREASED [None]
  - HYPOKALAEMIA [None]
